FAERS Safety Report 5319321-3 (Version None)
Quarter: 2007Q2

REPORT INFORMATION
  Report Type: 
  Country: None (occurrence: None)
  Receive Date: 20070508
  Receipt Date: 20070501
  Transmission Date: 20071010
  Serious: Yes (Hospitalization, Other)
  Sender: FDA-Public Use
  Company Number: US-ABBOTT-07P-163-0366783-00

PATIENT
  Sex: Female
  Weight: 61.29 kg

DRUGS (5)
  1. SYNTHROID [Suspect]
     Indication: THYROIDECTOMY
     Route: 048
     Dates: start: 19920101
  2. COUMADIN [Concomitant]
     Indication: CARDIAC PACEMAKER INSERTION
     Route: 048
  3. ZOCOR [Concomitant]
     Indication: DRUG USE FOR UNKNOWN INDICATION
     Route: 048
  4. ASPIRIN [Concomitant]
     Indication: PROPHYLAXIS
     Route: 048
  5. IMITREX [Concomitant]
     Indication: MIGRAINE
     Route: 048

REACTIONS (3)
  - BLOOD PRESSURE DECREASED [None]
  - PELVIC FRACTURE [None]
  - SYNCOPE [None]
